FAERS Safety Report 10476160 (Version 1)
Quarter: 2014Q3

REPORT INFORMATION
  Report Type: Spontaneous
  Country: US (occurrence: US)
  Receive Date: 20140925
  Receipt Date: 20140925
  Transmission Date: 20150326
  Serious: No
  Sender: FDA-Public Use
  Company Number: US-009507513-R0060540

PATIENT
  Age: 51 Year
  Sex: Male

DRUGS (2)
  1. ZESTRIL [Suspect]
     Active Substance: LISINOPRIL
  2. TIMOPTIC [Concomitant]
     Active Substance: TIMOLOL MALEATE

REACTIONS (1)
  - Rheumatoid arthritis [Unknown]

NARRATIVE: CASE EVENT DATE: 19890515
